FAERS Safety Report 16937758 (Version 1)
Quarter: 2019Q4

REPORT INFORMATION
  Report Type: Spontaneous
  Country: US (occurrence: US)
  Receive Date: 20191018
  Receipt Date: 20191018
  Transmission Date: 20200122
  Serious: Yes (Other)
  Sender: FDA-Public Use
  Company Number: US-PFIZER INC-2019448594

PATIENT
  Age: 86 Year
  Sex: Female
  Weight: 91 kg

DRUGS (1)
  1. ATORVASTATIN CALCIUM. [Suspect]
     Active Substance: ATORVASTATIN CALCIUM
     Indication: BLOOD CHOLESTEROL INCREASED
     Dosage: 10 MG, 1X/DAY (8PM)
     Route: 048
     Dates: end: 20190924

REACTIONS (5)
  - Skin burning sensation [Recovering/Resolving]
  - Urinary tract infection [Unknown]
  - Urticaria [Recovering/Resolving]
  - Dementia Alzheimer^s type [Recovering/Resolving]
  - Liver disorder [Unknown]

NARRATIVE: CASE EVENT DATE: 2019
